FAERS Safety Report 12709625 (Version 1)
Quarter: 2016Q3

REPORT INFORMATION
  Report Type: Spontaneous
  Country: SE (occurrence: SE)
  Receive Date: 20160901
  Receipt Date: 20160901
  Transmission Date: 20161109
  Serious: Yes (Other)
  Sender: FDA-Public Use
  Company Number: SE-ROCHE-1823863

PATIENT
  Age: 24 Year
  Sex: Female

DRUGS (1)
  1. XOLAIR [Suspect]
     Active Substance: OMALIZUMAB
     Indication: ASTHMA
     Dosage: 150 MG EACH ARM TOT 300 MG
     Route: 065
     Dates: start: 201509, end: 201512

REACTIONS (3)
  - Injection site erythema [Recovered/Resolved with Sequelae]
  - Injection site vesicles [Recovered/Resolved with Sequelae]
  - Injection site swelling [Recovered/Resolved with Sequelae]

NARRATIVE: CASE EVENT DATE: 20151223
